FAERS Safety Report 8319933-9 (Version None)
Quarter: 2012Q2

REPORT INFORMATION
  Report Type: 
  Country: None (occurrence: None)
  Receive Date: 20120427
  Receipt Date: 20120412
  Transmission Date: 20120825
  Serious: Yes (Other)
  Sender: FDA-Public Use
  Company Number: US-ENDO PHARMACEUTICALS INC.-OPIR20120044

PATIENT
  Sex: Male

DRUGS (1)
  1. OPANA [Suspect]
     Indication: PRODUCT USED FOR UNKNOWN INDICATION
     Route: 048
     Dates: end: 20120101

REACTIONS (2)
  - CEREBROVASCULAR ACCIDENT [None]
  - WITHDRAWAL SYNDROME [None]
